FAERS Safety Report 15003523 (Version 1)
Quarter: 2018Q2

REPORT INFORMATION
  Report Type: Spontaneous
  Country: DE (occurrence: DE)
  Receive Date: 20180613
  Receipt Date: 20180613
  Transmission Date: 20180711
  Serious: Yes (Hospitalization)
  Sender: FDA-Public Use
  Company Number: DE-TEVA-2018-DE-905820

PATIENT
  Age: 83 Year
  Sex: Female

DRUGS (8)
  1. BISOPROLOL [Suspect]
     Active Substance: BISOPROLOL
     Route: 048
  2. PANTOPRAZOL [Concomitant]
     Active Substance: PANTOPRAZOLE SODIUM
     Route: 048
  3. CARMEN [Suspect]
     Active Substance: LERCANIDIPINE
     Route: 048
  4. VALSARTAN. [Suspect]
     Active Substance: VALSARTAN
     Route: 048
  5. AMLODIPIN [Suspect]
     Active Substance: AMLODIPINE BESYLATE
     Route: 048
  6. MOVICOL [Concomitant]
     Active Substance: POLYETHYLENE GLYCOL 3350\POTASSIUM CHLORIDE\SODIUM BICARBONATE\SODIUM CHLORIDE
     Route: 048
  7. VALSARTAN/HYDROCHLOROTHIAZID [Suspect]
     Active Substance: HYDROCHLOROTHIAZIDE\VALSARTAN
     Route: 048
  8. MUCUSOLVAN [Concomitant]
     Route: 048

REACTIONS (2)
  - Medication error [Unknown]
  - Hypertension [Unknown]

NARRATIVE: CASE EVENT DATE: 20150902
